FAERS Safety Report 9773812 (Version 2)
Quarter: 2013Q4

REPORT INFORMATION
  Report Type: Spontaneous
  Country: US (occurrence: US)
  Receive Date: 20131220
  Receipt Date: 20131220
  Transmission Date: 20140711
  Serious: Yes (Hospitalization)
  Sender: FDA-Public Use
  Company Number: 2013SP002696

PATIENT
  Sex: 0

DRUGS (1)
  1. VANCOMYCIN [Suspect]
     Indication: PRODUCT USED FOR UNKNOWN INDICATION
     Route: 042

REACTIONS (6)
  - Nephropathy toxic [Unknown]
  - Renal tubular disorder [Unknown]
  - Blood electrolytes abnormal [Unknown]
  - Blood creatinine increased [Unknown]
  - Product colour issue [Unknown]
  - Product reconstitution issue [Unknown]
